FAERS Safety Report 19022520 (Version 1)
Quarter: 2021Q1

REPORT INFORMATION
  Report Type: Spontaneous
  Country: FR (occurrence: FR)
  Receive Date: 20210317
  Receipt Date: 20210317
  Transmission Date: 20210420
  Serious: Yes (Other)
  Sender: FDA-Public Use
  Company Number: FR-ANIPHARMA-2021-FR-000059

PATIENT
  Age: 73 Year
  Sex: Male
  Weight: 74 kg

DRUGS (3)
  1. COMIRNATY [Suspect]
     Active Substance: TOZINAMERAN
     Dosage: .3 ML UNK
     Route: 030
     Dates: start: 20210212, end: 20210212
  2. CASODEX [Suspect]
     Active Substance: BICALUTAMIDE
     Indication: PROSTATE CANCER
     Route: 048
     Dates: start: 20201112, end: 20210210
  3. LEPTOPROL [Suspect]
     Active Substance: LEUPROLIDE ACETATE
     Dosage: 5 MG Q3MO
     Route: 030
     Dates: start: 202011, end: 20210209

REACTIONS (2)
  - Rash [Unknown]
  - Eosinophilia [Unknown]

NARRATIVE: CASE EVENT DATE: 20210214
